FAERS Safety Report 9513882 (Version 1)
Quarter: 2013Q1

REPORT INFORMATION
  Report Type: Spontaneous
  Country: US (occurrence: None)
  Receive Date: 20130305
  Receipt Date: 20130305
  Transmission Date: 20140127
  Serious: Yes (Other)
  Sender: FDA-Public Use
  Company Number: 163-21880-12102450

PATIENT
  Age: 64 Year
  Sex: Male

DRUGS (7)
  1. REVLIMID (LENALIDOMIDE) (15 MILLIGRAM, CAPSULES) [Suspect]
     Indication: PLASMA CELL MYELOMA
     Dosage: 15 MG, 21 IN 21 D, PO
     Route: 048
     Dates: start: 20120309
  2. IMODIUM (LOPERAMIDE HYDROCHLORIDE) (CAPSULES)? [Concomitant]
  3. LOPERAMIDE (LOPERAMIDE) (CAPSULES) [Concomitant]
  4. PAMIDRONATE (PAMIDRONATE DISODIUM) (INJECTION) [Concomitant]
  5. AREDIA (PAMIDRONATE DISODIUM) (INJECTION) [Concomitant]
  6. QUESTRAN (COLESTYRAMINE) (POWDER) [Concomitant]
  7. MULTIVITAMINS (MULTIVITAMINS) (TABLETS) [Concomitant]

REACTIONS (1)
  - Diarrhoea [None]
